FAERS Safety Report 7166810-5 (Version None)
Quarter: 2010Q4

REPORT INFORMATION
  Report Type: 
  Country: None (occurrence: None)
  Receive Date: 20101216
  Receipt Date: 20101208
  Transmission Date: 20110411
  Serious: Yes (Hospitalization, Other)
  Sender: FDA-Public Use
  Company Number: US-ROCHE-747993

PATIENT
  Age: 61 Year
  Sex: Male
  Weight: 104.9 kg

DRUGS (13)
  1. BEVACIZUMAB [Suspect]
     Route: 042
     Dates: start: 20101015
  2. CISPLATIN [Suspect]
     Dosage: DAY1 AND DAY8
     Route: 042
     Dates: start: 20101015
  3. DOCETAXEL [Suspect]
     Dosage: DAY1 AND DAY8
     Route: 042
     Dates: start: 20101015
  4. IRINOTECAN [Suspect]
     Route: 042
     Dates: start: 20101015
  5. LOVASTATIN [Concomitant]
  6. LISINOPRIL [Concomitant]
  7. SUDAFED 12 HOUR [Concomitant]
  8. ADVIL [Concomitant]
  9. DECADRON [Concomitant]
  10. ONDANSETRON [Concomitant]
  11. MEPERIDINE HCL [Concomitant]
  12. OMEPRAZOLE [Concomitant]
  13. EFFEXOR [Concomitant]

REACTIONS (5)
  - ASTHENIA [None]
  - DEHYDRATION [None]
  - DIARRHOEA [None]
  - HYPOTENSION [None]
  - RENAL FAILURE ACUTE [None]
